FAERS Safety Report 8220299-3 (Version None)
Quarter: 2012Q1

REPORT INFORMATION
  Report Type: 
  Country: None (occurrence: None)
  Receive Date: 20120320
  Receipt Date: 20120314
  Transmission Date: 20120608
  Serious: No
  Sender: FDA-Public Use
  Company Number: US-PFIZER INC-2012053577

PATIENT
  Sex: Male
  Weight: 111 kg

DRUGS (9)
  1. TIKOSYN [Suspect]
     Indication: ATRIAL FIBRILLATION
     Dosage: 0.5 MG, 2X/DAY
     Route: 048
     Dates: start: 20120212
  2. TIKOSYN [Suspect]
     Indication: ARRHYTHMIA
  3. PRADAXA [Suspect]
     Indication: ANTICOAGULANT THERAPY
     Dosage: 150 MG, 2X/DAY
     Dates: start: 20120212
  4. SINGULAIR [Concomitant]
     Indication: ASTHMA
  5. PROAIR HFA [Concomitant]
     Indication: DYSPNOEA
     Dosage: UNK
  6. PROAIR HFA [Concomitant]
     Indication: ASTHMA
  7. DILTIAZEM [Concomitant]
     Indication: ATRIAL FIBRILLATION
     Dosage: 180 MG, DAILY
  8. DILTIAZEM [Concomitant]
     Indication: ARRHYTHMIA
  9. SINGULAIR [Concomitant]
     Indication: HYPERSENSITIVITY
     Dosage: 10 MG, UNK

REACTIONS (4)
  - FATIGUE [None]
  - MEDICATION ERROR [None]
  - PROSTATITIS [None]
  - PALPITATIONS [None]
